FAERS Safety Report 17428479 (Version 1)
Quarter: 2020Q1

REPORT INFORMATION
  Report Type: Spontaneous
  Country: US (occurrence: US)
  Receive Date: 20200217
  Receipt Date: 20200217
  Transmission Date: 20200409
  Serious: No
  Sender: FDA-Public Use
  Company Number: NVSC2020US041428

PATIENT

DRUGS (1)
  1. ZOLPIDEM [Suspect]
     Active Substance: ZOLPIDEM TARTRATE
     Indication: CRANIOCEREBRAL INJURY
     Dosage: UNK
     Route: 065

REACTIONS (2)
  - Agitation [Unknown]
  - Product use in unapproved indication [Unknown]
